FAERS Safety Report 8144184-0 (Version None)
Quarter: 2012Q1

REPORT INFORMATION
  Report Type: 
  Country: None (occurrence: None)
  Receive Date: 20120217
  Receipt Date: 20120213
  Transmission Date: 20120608
  Serious: Yes (Hospitalization)
  Sender: FDA-Public Use
  Company Number: US-JNJFOC-20120207939

PATIENT
  Sex: Male
  Weight: 82.2 kg

DRUGS (11)
  1. NIACIN [Concomitant]
     Indication: HYPERLIPIDAEMIA
     Route: 048
  2. LOVASTATIN [Concomitant]
     Indication: HYPERLIPIDAEMIA
     Route: 048
  3. PLAVIX [Suspect]
     Indication: THROMBOSIS PROPHYLAXIS
     Route: 048
     Dates: end: 20060921
  4. OMERPRAZOLE [Concomitant]
     Indication: ULCER
     Route: 048
  5. VALSARTAN [Concomitant]
     Indication: CARDIAC FAILURE CONGESTIVE
     Route: 048
  6. ATENOLOL [Concomitant]
     Indication: CARDIAC DISORDER
     Route: 048
  7. ASPIRIN [Suspect]
     Indication: ANTICOAGULANT THERAPY
     Route: 048
     Dates: end: 20060921
  8. ASPIRIN [Suspect]
     Route: 048
     Dates: start: 20060901
  9. PLAVIX [Suspect]
     Route: 048
     Dates: start: 20060901
  10. ALLOPURINOL [Concomitant]
     Indication: GOUT
     Route: 048
  11. NESIRITIDE [Suspect]
     Indication: LEFT VENTRICULAR DYSFUNCTION
     Route: 058
     Dates: start: 20060921, end: 20060926

REACTIONS (1)
  - HAEMATURIA [None]
